FAERS Safety Report 8428482-9 (Version None)
Quarter: 2012Q2

REPORT INFORMATION
  Report Type: 
  Country: None (occurrence: None)
  Receive Date: 20120612
  Receipt Date: 20120606
  Transmission Date: 20120825
  Serious: No
  Sender: FDA-Public Use
  Company Number: US-PFIZER INC-2012126158

PATIENT
  Sex: Female

DRUGS (3)
  1. XANAX [Suspect]
  2. ZOLOFT [Suspect]
  3. VISTARIL [Suspect]

REACTIONS (1)
  - HYPERTENSION [None]
